FAERS Safety Report 6206648-6 (Version None)
Quarter: 2009Q2

REPORT INFORMATION
  Report Type: 
  Country: None (occurrence: None)
  Receive Date: 20090528
  Receipt Date: 20090518
  Transmission Date: 20091009
  Serious: Yes (Other)
  Sender: FDA-Public Use
  Company Number: DE-JNJFOC-20090503029

PATIENT
  Age: 16 Year
  Sex: Female
  Weight: 66 kg

DRUGS (5)
  1. REMICADE [Suspect]
     Dosage: RECEIVED ONE INFUSION WITH 500 MG
     Route: 042
  2. REMICADE [Suspect]
     Indication: LYMPHOMATOID PAPULOSIS
     Dosage: THREE INFUSIONS
     Route: 042
  3. IMMUNOSUPPRESSIVES [Concomitant]
  4. METHOTREXATE [Concomitant]
  5. PREDNISONE [Concomitant]

REACTIONS (1)
  - LYMPHOMA [None]
